FAERS Safety Report 13546373 (Version 2)
Quarter: 2017Q2

REPORT INFORMATION
  Report Type: Spontaneous
  Country: IN (occurrence: IN)
  Receive Date: 20170515
  Receipt Date: 20170517
  Transmission Date: 20170830
  Serious: Yes (Death)
  Sender: FDA-Public Use
  Company Number: IN-PFIZER INC-2017211555

PATIENT
  Age: 55 Year
  Sex: Male

DRUGS (3)
  1. FLUCONAZOLE. [Suspect]
     Active Substance: FLUCONAZOLE
     Indication: ANTIFUNGAL TREATMENT
     Dosage: 40 MG, UNK (INITIALLY)
     Route: 042
  2. VORICONAZOLE. [Suspect]
     Active Substance: VORICONAZOLE
     Indication: ANTIFUNGAL TREATMENT
     Dosage: UNK, (20 MG TO 200 MG/DAY)
     Route: 042
  3. FLUCONAZOLE. [Suspect]
     Active Substance: FLUCONAZOLE
     Dosage: 400 MG, 2X/DAY (GRADUALLY INCREASING)
     Route: 042

REACTIONS (4)
  - Infection [Fatal]
  - Fungal infection [Fatal]
  - Brain abscess [Fatal]
  - Drug ineffective [Fatal]
